FAERS Safety Report 7681601-4 (Version None)
Quarter: 2011Q3

REPORT INFORMATION
  Report Type: 
  Country: None (occurrence: None)
  Receive Date: 20110812
  Receipt Date: 20110801
  Transmission Date: 20111222
  Serious: Yes (Hospitalization)
  Sender: FDA-Public Use
  Company Number: PHHO2011US13198

PATIENT
  Age: 70 Year
  Sex: Male
  Weight: 81.6 kg

DRUGS (3)
  1. PACLITAXEL [Suspect]
     Indication: METASTATIC NEOPLASM
     Dosage: 175MG/M2 DAY 1 Q 21 DAYS
     Route: 042
     Dates: start: 20110713
  2. CARBOPLATIN [Suspect]
     Indication: METASTATIC NEOPLASM
     Dosage: AUC-5 DAY 1 Q 21 DAYS
     Route: 042
     Dates: start: 20110713
  3. AFINITOR [Suspect]
     Indication: METASTATIC NEOPLASM
     Dosage: 30 MG DAYS 1,8,15 Q 21 DAYS
     Route: 048
     Dates: start: 20110713, end: 20110720

REACTIONS (5)
  - WHITE BLOOD CELL DISORDER [None]
  - DYSPHAGIA [None]
  - DEEP VEIN THROMBOSIS [None]
  - DEHYDRATION [None]
  - HYPOTENSION [None]
